FAERS Safety Report 6037789-4 (Version None)
Quarter: 2009Q1

REPORT INFORMATION
  Report Type: 
  Country: None (occurrence: None)
  Receive Date: 20090114
  Receipt Date: 20090102
  Transmission Date: 20090719
  Serious: Yes (Death)
  Sender: FDA-Public Use
  Company Number: 2009S1000140

PATIENT
  Age: 58 Year
  Sex: Male

DRUGS (1)
  1. GEN-CLOZAPINE (CLOZAPINE) [Suspect]
     Dosage: ORAL
     Route: 048
     Dates: start: 19930115

REACTIONS (1)
  - MYOCARDIAL INFARCTION [None]
